FAERS Safety Report 14470779 (Version 1)
Quarter: 2018Q1

REPORT INFORMATION
  Report Type: Spontaneous
  Country: US (occurrence: US)
  Receive Date: 20180131
  Receipt Date: 20180131
  Transmission Date: 20180509
  Serious: Yes (Other)
  Sender: FDA-Public Use
  Company Number: US-SA-2018SA019669

PATIENT
  Sex: Male

DRUGS (2)
  1. LOVENOX [Suspect]
     Active Substance: ENOXAPARIN SODIUM
     Indication: THROMBOSIS
     Route: 065
  2. XALKORI [Suspect]
     Active Substance: CRIZOTINIB
     Route: 065

REACTIONS (4)
  - Epistaxis [Unknown]
  - Confusional state [Unknown]
  - Craniotomy [Unknown]
  - Injection site bruising [Unknown]
